FAERS Safety Report 21049985 (Version 2)
Quarter: 2022Q3

REPORT INFORMATION
  Report Type: Spontaneous
  Country: CN (occurrence: CN)
  Receive Date: 20220706
  Receipt Date: 20220708
  Transmission Date: 20221027
  Serious: No
  Sender: FDA-Public Use
  Company Number: CN-ELI_LILLY_AND_COMPANY-CN202206014439

PATIENT
  Age: 85 Year
  Weight: 95 kg

DRUGS (3)
  1. HUMALOG [Suspect]
     Active Substance: INSULIN LISPRO
     Indication: Diabetes mellitus
     Dosage: 13 U, EACH MORNING
     Route: 058
     Dates: start: 2012
  2. HUMALOG [Suspect]
     Active Substance: INSULIN LISPRO
     Dosage: 13 U, OTHER (NOON)
     Route: 058
     Dates: start: 2012
  3. HUMALOG [Suspect]
     Active Substance: INSULIN LISPRO
     Dosage: 16 U, EACH EVENING (NIGHT)
     Route: 058
     Dates: start: 2012

REACTIONS (1)
  - Blood glucose increased [Unknown]
